FAERS Safety Report 25229404 (Version 1)
Quarter: 2025Q2

REPORT INFORMATION
  Report Type: Spontaneous
  Country: GB (occurrence: GB)
  Receive Date: 20250423
  Receipt Date: 20250423
  Transmission Date: 20250716
  Serious: Yes (Disabling)
  Sender: ABBVIE
  Company Number: None

PATIENT
  Sex: Male

DRUGS (2)
  1. CITALOPRAM [Suspect]
     Active Substance: CITALOPRAM
     Indication: Anxiety
     Dosage: 20 MG ONCE A DAY IN THE MORNING
     Route: 048
  2. CETIRIZINE [Concomitant]
     Active Substance: CETIRIZINE HYDROCHLORIDE
     Indication: Seasonal allergy

REACTIONS (5)
  - Loss of libido [Recovering/Resolving]
  - Memory impairment [Recovering/Resolving]
  - Libido decreased [Recovering/Resolving]
  - Disturbance in attention [Recovering/Resolving]
  - Sexual dysfunction [Unknown]
